FAERS Safety Report 13329907 (Version 3)
Quarter: 2019Q3

REPORT INFORMATION
  Report Type: Report from Study
  Country: US (occurrence: US)
  Receive Date: 20170313
  Receipt Date: 20190822
  Transmission Date: 20191004
  Serious: Yes (Death, Hospitalization, Other)
  Sender: FDA-Public Use
  Company Number: PHHO2017US001737

PATIENT
  Age: 69 Year
  Sex: Female
  Weight: 79.8 kg

DRUGS (2)
  1. GSK1120212 [Suspect]
     Active Substance: TRAMETINIB
     Indication: OVARIAN EPITHELIAL CANCER
     Dosage: 2 MG, QD
     Route: 048
     Dates: start: 20150311
  2. GSK1120212 [Suspect]
     Active Substance: TRAMETINIB
     Dosage: 2 MG, QD
     Route: 048
     Dates: end: 20160224

REACTIONS (4)
  - Ovarian cancer [Fatal]
  - Sinus tachycardia [Unknown]
  - Dyspnoea [Fatal]
  - Anaemia [Recovered/Resolved]

NARRATIVE: CASE EVENT DATE: 20160224
